FAERS Safety Report 4414171-4 (Version None)
Quarter: 2004Q3

REPORT INFORMATION
  Report Type: 
  Country: None (occurrence: None)
  Receive Date: 20040803
  Receipt Date: 20040614
  Transmission Date: 20050211
  Serious: Yes (Death, Life-Threatening, Other)
  Sender: FDA-Public Use
  Company Number: PHHO2004JP08451

PATIENT
  Age: 50 Year
  Sex: Male
  Weight: 56 kg

DRUGS (6)
  1. SANDIMMUNE [Suspect]
     Indication: LUNG TRANSPLANT
     Dosage: 72 - 180 MG / DAY
     Route: 042
     Dates: start: 20040521, end: 20040604
  2. SIMULECT [Suspect]
     Indication: LUNG TRANSPLANT
     Dosage: 20 MG, DAY 0
     Route: 042
     Dates: start: 20040521, end: 20040521
  3. SIMULECT [Suspect]
     Dosage: 20 MG, DAY 4
     Route: 042
     Dates: start: 20040525, end: 20040525
  4. METHYLPREDNISOLONE [Suspect]
     Indication: LUNG TRANSPLANT
     Dosage: 20 - 375 MG / DAY
     Route: 042
     Dates: start: 20040521
  5. CELLCEPT [Suspect]
     Indication: LUNG TRANSPLANT
     Dosage: 2 G / DAY
     Route: 048
     Dates: start: 20040524, end: 20040531
  6. IMURAN [Suspect]
     Indication: LUNG TRANSPLANT
     Dosage: 100 MG / DAY
     Route: 042
     Dates: start: 20040521, end: 20040525

REACTIONS (10)
  - BACTERIAL SEPSIS [None]
  - BRONCHIAL ANASTOMOSIS COMPLICATION [None]
  - LUNG LOBECTOMY [None]
  - LUNG OPERATION [None]
  - PNEUMONIA [None]
  - PSEUDOMONAS INFECTION [None]
  - PULMONARY ARTERY THROMBOSIS [None]
  - PULMONARY OEDEMA [None]
  - PULMONARY VENOUS THROMBOSIS [None]
  - PYOTHORAX [None]
